FAERS Safety Report 11378574 (Version 2)
Quarter: 2015Q3

REPORT INFORMATION
  Report Type: Spontaneous
  Country: US (occurrence: US)
  Receive Date: 20150811
  Receipt Date: 20150903
  Transmission Date: 20151125
  Serious: No
  Sender: FDA-Public Use
  Company Number: US-ELI_LILLY_AND_COMPANY-US200810006057

PATIENT
  Age: 75 Year
  Sex: Female

DRUGS (9)
  1. HUMALOG MIX75/25 [Suspect]
     Active Substance: INSULIN LISPRO
  2. HUMULIN N [Suspect]
     Active Substance: INSULIN HUMAN
  3. HUMULIN N [Suspect]
     Active Substance: INSULIN HUMAN
  4. HUMULIN N [Suspect]
     Active Substance: INSULIN HUMAN
  5. HUMULIN N [Suspect]
     Active Substance: INSULIN HUMAN
  6. HUMULIN N [Suspect]
     Active Substance: INSULIN HUMAN
  7. HUMULIN N [Suspect]
     Active Substance: INSULIN HUMAN
  8. HUMULIN N [Suspect]
     Active Substance: INSULIN HUMAN
  9. HUMULIN N [Suspect]
     Active Substance: INSULIN HUMAN

REACTIONS (4)
  - Nervousness [Unknown]
  - Anxiety [Unknown]
  - Incorrect dose administered [Unknown]
  - Agitation [Unknown]

NARRATIVE: CASE EVENT DATE: 20081023
